FAERS Safety Report 4352347-5 (Version None)
Quarter: 2004Q2

REPORT INFORMATION
  Report Type: 
  Country: None (occurrence: None)
  Receive Date: 20040428
  Receipt Date: 20040415
  Transmission Date: 20050107
  Serious: Yes (Hospitalization)
  Sender: FDA-Public Use
  Company Number: CL-JNJFOC-20040404688

PATIENT
  Age: 40 Year
  Sex: Male

DRUGS (8)
  1. ZALDIAR (TRAMADOL/APAP) TABLETS [Suspect]
     Dosage: 1 DOSE(S), 1 IN 1 DAY, ORAL
     Route: 048
     Dates: start: 20040108
  2. TEGRETOL [Suspect]
     Indication: PANIC DISORDER
     Dosage: 400 M G, 2 IN 1 DAY
     Dates: start: 20031215, end: 20040210
  3. AROXAT (PAROXETINE) [Concomitant]
  4. RAVOTRIL (CLONAZEPAM) [Concomitant]
  5. DICLOFENAC (DICLOFENAC) [Concomitant]
  6. MIGRANOL (MIGRANOL) [Concomitant]
  7. BESEROL (CHLORMEZANONE) [Concomitant]
  8. LORNOXICAM (LORNOXICAM) [Concomitant]

REACTIONS (5)
  - DRUG INEFFECTIVE [None]
  - GASTRITIS EROSIVE [None]
  - MARROW HYPERPLASIA [None]
  - MYELODYSPLASTIC SYNDROME [None]
  - PAIN EXACERBATED [None]
